FAERS Safety Report 11507773 (Version 1)
Quarter: 2015Q3

REPORT INFORMATION
  Report Type: Spontaneous
  Country: US (occurrence: US)
  Receive Date: 20150903
  Receipt Date: 20150903
  Transmission Date: 20151125
  Serious: No
  Sender: FDA-Public Use
  Company Number: US-ELI_LILLY_AND_COMPANY-US200909004350

PATIENT
  Sex: Male

DRUGS (5)
  1. THERAPEUTIC RADIOPHARMACEUTICALS [Concomitant]
     Active Substance: RADIATION THERAPY
     Indication: PANCREATIC CARCINOMA
     Dates: start: 20090731, end: 20090910
  2. LANTUS [Concomitant]
     Active Substance: INSULIN GLARGINE
     Dosage: UNK, UNK
     Dates: start: 20090806, end: 20090813
  3. GLYBURIDE. [Concomitant]
     Active Substance: GLYBURIDE
     Dates: end: 20090914
  4. CHEMOTHERAPEUTICS NOS [Concomitant]
     Active Substance: UNSPECIFIED INGREDIENT
     Indication: PANCREATIC CARCINOMA
     Dosage: UNK, UNK
     Dates: start: 20090731, end: 20090910
  5. HUMALOG [Suspect]
     Active Substance: INSULIN LISPRO
     Dosage: UNK, UNK
     Dates: start: 20090806

REACTIONS (3)
  - Blood glucose increased [Unknown]
  - Diabetes mellitus inadequate control [Unknown]
  - Blood glucose decreased [Unknown]

NARRATIVE: CASE EVENT DATE: 2009
